FAERS Safety Report 9245143 (Version 1)
Quarter: 2013Q1

REPORT INFORMATION
  Report Type: Spontaneous
  Country: US (occurrence: None)
  Receive Date: 20121130
  Receipt Date: 20121130
  Transmission Date: 20140127
  Serious: Yes (Other)
  Sender: FDA-Public Use
  Company Number: PHEH2012US004389

PATIENT
  Age: 63 Year
  Sex: Female

DRUGS (12)
  1. TEKTURNA [Suspect]
     Indication: BLOOD PRESSURE
     Dosage: 0.5 DF (150MG), QD
  2. DIOVAN [Suspect]
     Indication: BLOOD PRESSURE
  3. LEVOTHYROXINE (ISOSORBIDE MONONITRATE) [Concomitant]
  4. LASIX (FUROSEMIDE) [Concomitant]
  5. POTASSIUM (POTASSIUM) [Concomitant]
  6. TIKOSYN (DOFETILIDE) [Concomitant]
  7. ASPI-RUB [Concomitant]
  8. WARFARIN (WARFARIN) [Concomitant]
  9. PLAVIX (CLOPIDOGREL SULFATE) [Concomitant]
  10. LIPITOR (ATORVASTATIN BESILATE) [Concomitant]
  11. NORVASC (AMLODIPINE BESILATE) [Concomitant]
  12. METFORMIN (METFORMIN) [Concomitant]

REACTIONS (2)
  - Hypertension [None]
  - Dizziness [None]
